FAERS Safety Report 25721801 (Version 1)
Quarter: 2025Q3

REPORT INFORMATION
  Report Type: Spontaneous
  Country: EU (occurrence: EU)
  Receive Date: 20250825
  Receipt Date: 20250825
  Transmission Date: 20251021
  Serious: Yes (Life-Threatening, Other)
  Sender: AUROBINDO
  Company Number: EU-AFSSAPS-PV2025000614

PATIENT
  Age: 13 Year
  Sex: Female
  Weight: 54 kg

DRUGS (1)
  1. ACETAMINOPHEN [Suspect]
     Active Substance: ACETAMINOPHEN
     Indication: Abdominal pain
     Route: 048
     Dates: start: 20250617, end: 20250618

REACTIONS (1)
  - Hepatitis fulminant [Recovered/Resolved with Sequelae]

NARRATIVE: CASE EVENT DATE: 20250618
